FAERS Safety Report 22236484 (Version 1)
Quarter: 2023Q2

REPORT INFORMATION
  Report Type: Other
  Country: US (occurrence: None)
  Receive Date: 20230420
  Receipt Date: 20230420
  Transmission Date: 20230722
  Serious: Yes (Other)
  Sender: FDA-Public Use
  Company Number: US-ROCHE-3197568

PATIENT
  Age: 13 Year
  Sex: Male

DRUGS (8)
  1. BEVACIZUMAB [Suspect]
     Active Substance: BEVACIZUMAB
     Indication: Glioblastoma multiforme
     Route: 065
     Dates: end: 201808
  2. EVEROLIMUS [Concomitant]
     Active Substance: EVEROLIMUS
     Indication: Glioblastoma multiforme
  3. RAPAMYCIN [Concomitant]
     Active Substance: SIROLIMUS
  4. TEMOZOLOMIDE [Concomitant]
     Active Substance: TEMOZOLOMIDE
     Indication: Glioblastoma multiforme
  5. LEUCOVORIN [Concomitant]
     Active Substance: LEUCOVORIN
  6. OXALIPLATIN [Concomitant]
     Active Substance: OXALIPLATIN
  7. FLUOROURACIL [Concomitant]
     Active Substance: FLUOROURACIL
  8. NIVOLUMAB [Concomitant]
     Active Substance: NIVOLUMAB

REACTIONS (1)
  - Nephrotic syndrome [Unknown]
